FAERS Safety Report 5941023-0 (Version None)
Quarter: 2008Q4

REPORT INFORMATION
  Report Type: 
  Country: None (occurrence: None)
  Receive Date: 20081104
  Receipt Date: 20081029
  Transmission Date: 20090506
  Serious: No
  Sender: FDA-Public Use
  Company Number: US-B.I. PHARMACEUTICALS,INC./RIDGEFIELD-2008-BP-16574BP

PATIENT
  Sex: Male

DRUGS (2)
  1. SPIRIVA HANDIHALER (PRETREATMENT) [Suspect]
     Indication: CHRONIC OBSTRUCTIVE PULMONARY DISEASE
  2. SPIRIVA HANDIHALER (PRETREATMENT) [Suspect]
     Indication: EMPHYSEMA

REACTIONS (1)
  - DRUG INEFFECTIVE [None]
